FAERS Safety Report 9871725 (Version 1)
Quarter: 2014Q1

REPORT INFORMATION
  Report Type: Spontaneous
  Country: IT (occurrence: IT)
  Receive Date: 20140205
  Receipt Date: 20140205
  Transmission Date: 20141002
  Serious: Yes (Other)
  Sender: FDA-Public Use
  Company Number: IT-BAXTER-2014BAX005825

PATIENT
  Sex: 0

DRUGS (7)
  1. ENDOXAN BAXTER [Suspect]
     Indication: BONE MARROW CONDITIONING REGIMEN
     Dosage: 3 G/M2 ON DAY 8
     Route: 065
  2. ENDOXAN BAXTER [Suspect]
     Dosage: 4 CYCLES
     Route: 065
  3. DEXAMETHASONE [Suspect]
     Indication: BONE MARROW CONDITIONING REGIMEN
     Dosage: 4 CYCLES
     Route: 065
  4. BORTEZOMIB [Suspect]
     Indication: BONE MARROW CONDITIONING REGIMEN
     Dosage: ON DAYS -6, -3, +1, +4
     Route: 065
  5. BORTEZOMIB [Suspect]
     Dosage: 4 CYCLES
     Route: 065
  6. MELPHALAN [Suspect]
     Indication: STEM CELL TRANSPLANT
     Dosage: ON DAY -1
     Route: 065
  7. THALIDOMIDE [Suspect]
     Indication: BONE MARROW CONDITIONING REGIMEN
     Route: 065

REACTIONS (1)
  - Disease progression [Unknown]
